FAERS Safety Report 7166661-1 (Version None)
Quarter: 2010Q4

REPORT INFORMATION
  Report Type: 
  Country: None (occurrence: None)
  Receive Date: 20101216
  Receipt Date: 20101214
  Transmission Date: 20110411
  Serious: Yes (Hospitalization)
  Sender: FDA-Public Use
  Company Number: US-CEPHALON-2010006447

PATIENT
  Sex: Male

DRUGS (1)
  1. TREANDA [Suspect]
     Route: 042

REACTIONS (1)
  - GASTROINTESTINAL INJURY [None]
